FAERS Safety Report 9829446 (Version 3)
Quarter: 2014Q1

REPORT INFORMATION
  Report Type: Spontaneous
  Country: US (occurrence: US)
  Receive Date: 20140120
  Receipt Date: 20140211
  Transmission Date: 20141002
  Serious: Yes (Hospitalization, Other)
  Sender: FDA-Public Use
  Company Number: US-BIOGENIDEC-2004BI001909

PATIENT
  Age: 48 Year
  Sex: Male

DRUGS (2)
  1. AVONEX [Suspect]
     Indication: MULTIPLE SCLEROSIS
     Route: 030
     Dates: start: 19980302, end: 20050705
  2. AVONEX [Suspect]
     Indication: MULTIPLE SCLEROSIS
     Route: 030
     Dates: start: 20061222

REACTIONS (6)
  - Injection site infection [Recovered/Resolved]
  - Injection site abscess [Recovered/Resolved]
  - Cognitive disorder [Unknown]
  - Dyskinesia [Recovered/Resolved]
  - Injury associated with device [Recovered/Resolved]
  - Skin haemorrhage [Recovered/Resolved]
